FAERS Safety Report 19103008 (Version 3)
Quarter: 2021Q2

REPORT INFORMATION
  Report Type: Spontaneous
  Country: JP (occurrence: JP)
  Receive Date: 20210407
  Receipt Date: 20210511
  Transmission Date: 20210717
  Serious: Yes (Hospitalization, Other)
  Sender: FDA-Public Use
  Company Number: JP-GLAXOSMITHKLINE-JP2020JPN261546

PATIENT
  Age: 57 Year
  Sex: Female
  Weight: 41 kg

DRUGS (28)
  1. PREDNISOLONE. [Concomitant]
     Active Substance: PREDNISOLONE
     Indication: SYSTEMIC LUPUS ERYTHEMATOSUS
     Dosage: 14 MG, 1D
     Route: 048
     Dates: start: 20180216, end: 20180219
  2. PREDNISOLONE. [Concomitant]
     Active Substance: PREDNISOLONE
     Dosage: 11 MG, 1D
     Route: 048
     Dates: start: 20180413, end: 20180424
  3. PREDNISOLONE. [Concomitant]
     Active Substance: PREDNISOLONE
     Dosage: 9 MG, 1D
     Route: 048
     Dates: start: 20180523, end: 20180619
  4. BENLYSTA [Concomitant]
     Active Substance: BELIMUMAB
     Indication: SYSTEMIC LUPUS ERYTHEMATOSUS
     Dosage: 400 MG
     Route: 041
     Dates: start: 20180216, end: 20180315
  5. PREDNISOLONE. [Concomitant]
     Active Substance: PREDNISOLONE
     Dosage: 7 MG, 1D
     Route: 048
     Dates: start: 20180718, end: 20180911
  6. SALOBEL [Concomitant]
     Active Substance: ALLOPURINOL
     Dosage: UNK
  7. CEFTRIAXONE SODIUM. [Concomitant]
     Active Substance: CEFTRIAXONE SODIUM
     Indication: CELLULITIS
     Dosage: UNK
     Dates: start: 20180417
  8. PREDNISOLONE. [Concomitant]
     Active Substance: PREDNISOLONE
     Dosage: 13 MG, 1D
     Route: 048
     Dates: start: 20180220, end: 20180315
  9. BIO?THREE [Concomitant]
     Active Substance: HERBALS
     Indication: PROPHYLAXIS
  10. BENLYSTA [Concomitant]
     Active Substance: BELIMUMAB
     Dosage: 400 UNK
     Route: 041
     Dates: start: 20180814, end: 20181204
  11. PREDNISOLONE. [Concomitant]
     Active Substance: PREDNISOLONE
     Dosage: 8 MG, 1D
     Route: 048
     Dates: start: 20180620, end: 20180717
  12. ITRIZOLE ORAL SOLUTION [Concomitant]
  13. PREDNISOLONE. [Concomitant]
     Active Substance: PREDNISOLONE
     Dosage: 12 MG, 1D
     Route: 048
     Dates: start: 20180316, end: 20180412
  14. DAIPHEN [Concomitant]
     Active Substance: SULFAMETHOXAZOLE\TRIMETHOPRIM
     Indication: ANTIFUNGAL PROPHYLAXIS
  15. RISUMIC [Concomitant]
     Active Substance: AMEZINIUM METILSULFATE
  16. RABEPRAZOLE SODIUM. [Concomitant]
     Active Substance: RABEPRAZOLE SODIUM
     Indication: PROPHYLAXIS
  17. PREDNISOLONE. [Suspect]
     Active Substance: PREDNISOLONE
     Dosage: UNK
  18. PREDNISOLONE. [Concomitant]
     Active Substance: PREDNISOLONE
     Dosage: 10 MG, 1D
     Route: 048
     Dates: start: 20180425, end: 20180522
  19. VALIXA (VALGANCICLOVIR HYDROCHLORIDE) [Concomitant]
     Dosage: UNK
     Dates: start: 20180412
  20. BENLYSTA [Concomitant]
     Active Substance: BELIMUMAB
     Dosage: 400 UNK
     Route: 041
     Dates: start: 20180424, end: 20180802
  21. PREDNISOLONE. [Concomitant]
     Active Substance: PREDNISOLONE
     Dosage: 6 MG, 1D
     Route: 048
     Dates: start: 20180912
  22. NEORAL [Concomitant]
     Active Substance: CYCLOSPORINE
     Indication: SYSTEMIC LUPUS ERYTHEMATOSUS
     Dosage: UNK
     Route: 048
  23. TRAZENTA [Concomitant]
     Active Substance: LINAGLIPTIN
  24. TEPRENONE CAPSULES [Concomitant]
  25. CARBAZOCHROME SODIUM SULFONATE HYDRATE [Concomitant]
     Indication: PROPHYLAXIS
  26. ITRIZOLE (ITRACONAZOLE) [Concomitant]
     Indication: ANTIFUNGAL PROPHYLAXIS
  27. BENLYSTA [Suspect]
     Active Substance: BELIMUMAB
     Indication: SYSTEMIC LUPUS ERYTHEMATOSUS
     Dosage: 200 MG, WE
     Route: 058
     Dates: start: 20190108
  28. PRALIA [Concomitant]
     Active Substance: DENOSUMAB
     Dosage: UNK

REACTIONS (2)
  - Myocardial ischaemia [Recovering/Resolving]
  - Vascular stent stenosis [Recovering/Resolving]

NARRATIVE: CASE EVENT DATE: 20190802
